FAERS Safety Report 18122393 (Version 1)
Quarter: 2020Q3

REPORT INFORMATION
  Report Type: Spontaneous
  Country: US (occurrence: US)
  Receive Date: 20200807
  Receipt Date: 20200807
  Transmission Date: 20201103
  Serious: Yes (Other)
  Sender: FDA-Public Use
  Company Number: US-CADILA HEALTHCARE LIMITED-US-ZYDUS-053988

PATIENT

DRUGS (1)
  1. DESOXIMETASONE 0.0025 % OINTMENT, CREAM [Suspect]
     Active Substance: DESOXIMETASONE
     Indication: ECZEMA
     Dosage: UNK UNK, BID
     Route: 065

REACTIONS (2)
  - Adrenal insufficiency [Unknown]
  - Stress cardiomyopathy [Unknown]
